FAERS Safety Report 9526127 (Version 1)
Quarter: 2013Q3

REPORT INFORMATION
  Report Type: Spontaneous
  Country: US (occurrence: US)
  Receive Date: 20130916
  Receipt Date: 20130916
  Transmission Date: 20140515
  Serious: Yes (Other)
  Sender: FDA-Public Use
  Company Number: US-JNJFOC-20130905591

PATIENT
  Sex: Female

DRUGS (4)
  1. DOXORUBICIN [Suspect]
     Indication: BREAST CANCER
     Dosage: CONTINUOUS INFUSION OVER 72 HOURS
     Route: 042
  2. 5-FLUOROURACIL [Suspect]
     Indication: BREAST CANCER
     Dosage: OVER 15-30 MINUTES ON DAYS 1 AND 4
     Route: 042
  3. CYCLOPHOSPHAMIDE [Suspect]
     Indication: BREAST CANCER
     Dosage: OVER 15-30 MINUTES ON DAY 1
     Route: 042
  4. RADIOTHERAPY [Suspect]
     Indication: BREAST CANCER
     Dosage: 50 GY IN 25 FRACTIONS
     Route: 042

REACTIONS (1)
  - Peripheral sensory neuropathy [Unknown]
